FAERS Safety Report 25952974 (Version 1)
Quarter: 2025Q4

REPORT INFORMATION
  Report Type: Spontaneous
  Country: EU (occurrence: EU)
  Receive Date: 20251023
  Receipt Date: 20251023
  Transmission Date: 20260117
  Serious: Yes (Death, Hospitalization)
  Sender: MYLAN
  Company Number: EU-MYLANLABS-2025M1089037

PATIENT
  Age: 69 Year
  Sex: Male

DRUGS (1)
  1. ROPIVACAINE [Suspect]
     Active Substance: ROPIVACAINE
     Indication: Anaesthesia
     Dosage: UNK

REACTIONS (8)
  - Toxicity to various agents [Fatal]
  - Overdose [Fatal]
  - Pulmonary embolism [Fatal]
  - Arrhythmia [Fatal]
  - Visceral congestion [Unknown]
  - Renal infarct [Unknown]
  - Hepatic steatosis [Unknown]
  - Photodermatosis [Unknown]
